FAERS Safety Report 5537987-X (Version None)
Quarter: 2007Q4

REPORT INFORMATION
  Report Type: 
  Country: None (occurrence: None)
  Receive Date: 20071123
  Receipt Date: 20061208
  Transmission Date: 20080405
  Serious: Yes (Other)
  Sender: FDA-Public Use
  Company Number: US-JNJFOC-20061102843

PATIENT
  Age: 46 Year
  Sex: Male
  Weight: 97.0698 kg

DRUGS (1)
  1. LEVAQUIN [Suspect]
     Indication: DRUG USE FOR UNKNOWN INDICATION
     Dosage: 750 MG, 4 IN 1 DAY, ORAL
     Route: 048
     Dates: start: 20061031

REACTIONS (1)
  - ANAPHYLACTIC SHOCK [None]
